FAERS Safety Report 6004189-2 (Version None)
Quarter: 2008Q4

REPORT INFORMATION
  Report Type: 
  Country: None (occurrence: None)
  Receive Date: 20081216
  Receipt Date: 20081216
  Transmission Date: 20090506
  Serious: No
  Sender: FDA-Public Use
  Company Number: None

PATIENT
  Age: 68 Year
  Sex: Female
  Weight: 79.3795 kg

DRUGS (1)
  1. LOVAZA [Suspect]
     Indication: HYPERLIPIDAEMIA
     Dosage: 4 CAPSULES DAILY PO
     Route: 048
     Dates: start: 20080901, end: 20081213

REACTIONS (4)
  - DIZZINESS [None]
  - NAUSEA [None]
  - POSTNASAL DRIP [None]
  - SINUS CONGESTION [None]
